FAERS Safety Report 6730043-4 (Version None)
Quarter: 2010Q2

REPORT INFORMATION
  Report Type: 
  Country: None (occurrence: None)
  Receive Date: 20100518
  Receipt Date: 20100510
  Transmission Date: 20101027
  Serious: Yes (Death, Other)
  Sender: FDA-Public Use
  Company Number: ZA-BRISTOL-MYERS SQUIBB COMPANY-15071772

PATIENT

DRUGS (7)
  1. ERBITUX [Suspect]
     Indication: HEAD AND NECK CANCER
     Dosage: 700MG:12FEB2010 430MG:19FEB TO 1APR2010(40D)
     Route: 042
     Dates: start: 20100212, end: 20100401
  2. ERBITUX [Suspect]
     Indication: TONGUE NEOPLASM MALIGNANT STAGE UNSPECIFIED
     Dosage: 700MG:12FEB2010 430MG:19FEB TO 1APR2010(40D)
     Route: 042
     Dates: start: 20100212, end: 20100401
  3. RADIATION THERAPY [Suspect]
     Indication: HEAD AND NECK CANCER
  4. RADIATION THERAPY [Suspect]
     Indication: TONGUE NEOPLASM MALIGNANT STAGE UNSPECIFIED
  5. PANTOPRAZOLE [Concomitant]
  6. REMERON [Concomitant]
  7. MORPHINE SULFATE [Concomitant]
     Dosage: 1 DF=LOMG TO 2OMG SIRUP

REACTIONS (1)
  - PEPTIC ULCER HAEMORRHAGE [None]
